FAERS Safety Report 25191942 (Version 1)
Quarter: 2025Q2

REPORT INFORMATION
  Report Type: Spontaneous
  Country: IT (occurrence: IT)
  Receive Date: 20250414
  Receipt Date: 20250414
  Transmission Date: 20250716
  Serious: Yes (Other)
  Sender: AMGEN
  Company Number: IT-AMGEN-ITASP2025069534

PATIENT

DRUGS (1)
  1. ADALIMUMAB [Suspect]
     Active Substance: ADALIMUMAB
     Indication: Inflammatory bowel disease
     Route: 065

REACTIONS (7)
  - Pyoderma gangrenosum [Unknown]
  - Polymyalgia rheumatica [Unknown]
  - Spondyloarthropathy [Unknown]
  - Erythema nodosum [Unknown]
  - Hidradenitis [Unknown]
  - Arthritis [Unknown]
  - Psoriasis [Unknown]
